FAERS Safety Report 5725562-3 (Version None)
Quarter: 2008Q2

REPORT INFORMATION
  Report Type: 
  Country: None (occurrence: None)
  Receive Date: 20080501
  Receipt Date: 20080430
  Transmission Date: 20081010
  Serious: Yes (Hospitalization)
  Sender: FDA-Public Use
  Company Number: CN-ASTRAZENECA-2008AP01307

PATIENT
  Age: 22197 Day
  Sex: Female

DRUGS (3)
  1. IRESSA [Suspect]
     Indication: NON-SMALL CELL LUNG CANCER
     Route: 048
     Dates: start: 20070726, end: 20080225
  2. IRESSA [Suspect]
     Route: 048
     Dates: start: 20080307
  3. CODEINE SUL TAB [Concomitant]
     Indication: COUGH
     Route: 048
     Dates: start: 20070724, end: 20070815

REACTIONS (1)
  - HEPATIC FUNCTION ABNORMAL [None]
